FAERS Safety Report 16622917 (Version 1)
Quarter: 2019Q3

REPORT INFORMATION
  Report Type: Spontaneous
  Country: FR (occurrence: FR)
  Receive Date: 20190723
  Receipt Date: 20190723
  Transmission Date: 20191004
  Serious: Yes (Death, Hospitalization)
  Sender: FDA-Public Use
  Company Number: FR-TEVA-2019-FR-1081272

PATIENT
  Age: 78 Year
  Sex: Male

DRUGS (2)
  1. RIBAVIRINE [Suspect]
     Active Substance: RIBAVIRIN
     Indication: VIRAL HEPATITIS CARRIER
     Route: 048
     Dates: start: 20151007, end: 20151230
  2. HARVONI [Suspect]
     Active Substance: LEDIPASVIR\SOFOSBUVIR
     Indication: VIRAL HEPATITIS CARRIER
     Route: 048
     Dates: start: 20151007, end: 20151230

REACTIONS (1)
  - Hepatocellular carcinoma [Fatal]

NARRATIVE: CASE EVENT DATE: 2016
